FAERS Safety Report 13123597 (Version 1)
Quarter: 2017Q1

REPORT INFORMATION
  Report Type: Spontaneous
  Country: US (occurrence: US)
  Receive Date: 20170117
  Receipt Date: 20170117
  Transmission Date: 20170428
  Serious: No
  Sender: FDA-Public Use
  Company Number: US-TEVA-726212ACC

PATIENT
  Age: 55 Year
  Sex: Female

DRUGS (5)
  1. CALCIUM [Concomitant]
     Active Substance: CALCIUM
  2. AMPYRA [Suspect]
     Active Substance: DALFAMPRIDINE
     Indication: MULTIPLE SCLEROSIS
     Dosage: 20 MILLIGRAM DAILY;
     Route: 048
     Dates: start: 20160121
  3. VITAMIN D [Concomitant]
     Active Substance: CHOLECALCIFEROL
  4. COPAXONE [Suspect]
     Active Substance: GLATIRAMER ACETATE
     Indication: MULTIPLE SCLEROSIS
     Dosage: PRE FILLED SYRINGE
     Route: 058
     Dates: start: 20150124
  5. DEXILANT [Concomitant]
     Active Substance: DEXLANSOPRAZOLE

REACTIONS (2)
  - Fall [Unknown]
  - Skin swelling [Unknown]

NARRATIVE: CASE EVENT DATE: 20161028
